FAERS Safety Report 4979061-7 (Version None)
Quarter: 2006Q2

REPORT INFORMATION
  Report Type: 
  Country: None (occurrence: None)
  Receive Date: 20060421
  Receipt Date: 20060410
  Transmission Date: 20061013
  Serious: Yes (Hospitalization)
  Sender: FDA-Public Use
  Company Number: PHRM2006FR01329

PATIENT
  Age: 59 Year
  Sex: Male

DRUGS (3)
  1. DESFERAL [Suspect]
     Indication: HAEMOCHROMATOSIS
     Route: 042
     Dates: start: 20050505, end: 20060307
  2. NEORECORMON ^ROCHE^ [Suspect]
     Indication: NEUTROPENIA
     Route: 042
     Dates: start: 20050305, end: 20060307
  3. GRANOCYTE ^CHUGAI^ [Concomitant]
     Indication: NEUTROPENIA

REACTIONS (7)
  - CHILLS [None]
  - FEBRILE BONE MARROW APLASIA [None]
  - HAEMOGLOBIN DECREASED [None]
  - HERPES ZOSTER [None]
  - PANCYTOPENIA [None]
  - PLATELET COUNT DECREASED [None]
  - WHITE BLOOD CELL COUNT DECREASED [None]
